FAERS Safety Report 18253098 (Version 1)
Quarter: 2020Q3

REPORT INFORMATION
  Report Type: Spontaneous
  Country: US (occurrence: US)
  Receive Date: 20200910
  Receipt Date: 20200910
  Transmission Date: 20201103
  Serious: No
  Sender: FDA-Public Use
  Company Number: US-VERTEX PHARMACEUTICALS-2020-017916

PATIENT
  Age: 24 Year
  Sex: Female

DRUGS (8)
  1. PANCREAZE [Concomitant]
     Active Substance: PANCRELIPASE AMYLASE\PANCRELIPASE LIPASE\PANCRELIPASE PROTEASE
  2. TRIKAFTA [Suspect]
     Active Substance: ELEXACAFTOR\IVACAFTOR\TEZACAFTOR
     Indication: CYSTIC FIBROSIS
     Dosage: 2 TABLETS (100MG ELEXACAFTOR/50MG TEZACAFTOR/75MG IVACAFTOR) AM; 1 TABLET 150MG (IVACAFTOR) PM
     Route: 048
     Dates: start: 20191210
  3. CREON [Concomitant]
     Active Substance: PANCRELIPASE AMYLASE\PANCRELIPASE LIPASE\PANCRELIPASE PROTEASE
  4. PULMOZYME [Concomitant]
     Active Substance: DORNASE ALFA
  5. BUPROPION. [Concomitant]
     Active Substance: BUPROPION
  6. CITALOPRAM [Concomitant]
     Active Substance: CITALOPRAM HYDROBROMIDE
  7. LEVEMIR [Concomitant]
     Active Substance: INSULIN DETEMIR
  8. NOVOLOG [Concomitant]
     Active Substance: INSULIN ASPART

REACTIONS (2)
  - Pseudomonas test positive [Unknown]
  - Moraxella test positive [Unknown]

NARRATIVE: CASE EVENT DATE: 20200302
